FAERS Safety Report 4949308-1 (Version None)
Quarter: 2006Q1

REPORT INFORMATION
  Report Type: 
  Country: None (occurrence: None)
  Receive Date: 20060321
  Receipt Date: 20060313
  Transmission Date: 20060701
  Serious: Yes (Other)
  Sender: FDA-Public Use
  Company Number: PHRM2006FR01083

PATIENT
  Age: 13 Month
  Sex: Female

DRUGS (3)
  1. TRILEPTAL [Suspect]
     Dosage: 30 MG/KG/DAY
     Route: 048
  2. EPITOMAX [Concomitant]
  3. DI-HYDAN [Concomitant]

REACTIONS (1)
  - MYOCLONUS [None]
